FAERS Safety Report 9700772 (Version 1)
Quarter: 2013Q4

REPORT INFORMATION
  Report Type: Spontaneous
  Country: PT (occurrence: None)
  Receive Date: 20131119
  Receipt Date: 20131119
  Transmission Date: 20140711
  Serious: Yes (Other)
  Sender: FDA-Public Use
  Company Number: AUR-APL-2013-09382

PATIENT
  Age: 48 Year
  Sex: Male

DRUGS (2)
  1. RIBAVIRIN (RIBAVIRIN) [Suspect]
     Indication: CHRONIC HEPATITIS C
     Dosage: UNKNOWN
  2. PEGINTERFERON (PEGINTERFERON) [Suspect]
     Indication: CHRONIC HEPATITIS C
     Dosage: UNKNOWN

REACTIONS (2)
  - Inflammatory bowel disease [None]
  - Colitis ulcerative [None]
